FAERS Safety Report 15980141 (Version 1)
Quarter: 2019Q1

REPORT INFORMATION
  Report Type: Spontaneous
  Country: FR (occurrence: FR)
  Receive Date: 20190219
  Receipt Date: 20190219
  Transmission Date: 20190418
  Serious: Yes (Hospitalization)
  Sender: FDA-Public Use
  Company Number: FR-ASTRAZENECA-2019SE25768

PATIENT
  Age: 64 Year
  Sex: Male

DRUGS (4)
  1. TAVANIC [Suspect]
     Active Substance: LEVOFLOXACIN
     Route: 048
     Dates: start: 20140303
  2. IOMERON [Suspect]
     Active Substance: IOMEPROL
     Route: 065
  3. BISOPROLOL FUMARATE. [Suspect]
     Active Substance: BISOPROLOL FUMARATE
     Route: 048
     Dates: start: 20140227
  4. INEXIUM [Suspect]
     Active Substance: ESOMEPRAZOLE
     Route: 048
     Dates: start: 20140226

REACTIONS (1)
  - Toxic skin eruption [Recovered/Resolved]

NARRATIVE: CASE EVENT DATE: 20140309
